FAERS Safety Report 18057485 (Version 1)
Quarter: 2020Q3

REPORT INFORMATION
  Report Type: Report from Study
  Country: None (occurrence: CA)
  Receive Date: 20200723
  Receipt Date: 20200723
  Transmission Date: 20201103
  Serious: Yes (Other)
  Sender: FDA-Public Use
  Company Number: CA-ABBVIE-20K-028-3492597-00

PATIENT
  Sex: Male

DRUGS (1)
  1. HUMIRA [Suspect]
     Active Substance: ADALIMUMAB
     Indication: CROHN^S DISEASE
     Route: 058
     Dates: start: 20081105

REACTIONS (10)
  - Mouth ulceration [Not Recovered/Not Resolved]
  - Nephrolithiasis [Recovered/Resolved]
  - Ocular procedural complication [Unknown]
  - Muscle spasms [Not Recovered/Not Resolved]
  - Anal fissure [Not Recovered/Not Resolved]
  - Visual impairment [Unknown]
  - Foot deformity [Not Recovered/Not Resolved]
  - Arthralgia [Not Recovered/Not Resolved]
  - Dry eye [Unknown]
  - Photopsia [Recovered/Resolved]

NARRATIVE: CASE EVENT DATE: 2015
